FAERS Safety Report 18261069 (Version 3)
Quarter: 2020Q4

REPORT INFORMATION
  Report Type: Spontaneous
  Country: US (occurrence: US)
  Receive Date: 20200914
  Receipt Date: 20201216
  Transmission Date: 20210113
  Serious: No
  Sender: FDA-Public Use
  Company Number: NVSC2020US247446

PATIENT
  Sex: Male

DRUGS (1)
  1. TASIGNA [Suspect]
     Active Substance: NILOTINIB
     Indication: PRODUCT USED FOR UNKNOWN INDICATION
     Dosage: 150 MG, Q12H
     Route: 048

REACTIONS (5)
  - Frustration tolerance decreased [Unknown]
  - Weight decreased [Unknown]
  - Diarrhoea [Unknown]
  - Stress [Unknown]
  - Product dose omission issue [Unknown]
